FAERS Safety Report 8589823-5 (Version None)
Quarter: 2012Q3

REPORT INFORMATION
  Report Type: 
  Country: None (occurrence: None)
  Receive Date: 20120813
  Receipt Date: 19910808
  Transmission Date: 20120928
  Serious: Yes (Other)
  Sender: FDA-Public Use
  Company Number: US-ROCHE-1098686

PATIENT
  Age: 55 Year
  Sex: Male

DRUGS (5)
  1. TENORMIN [Concomitant]
     Route: 048
  2. LIDOCAINE [Concomitant]
  3. ASPIRIN [Concomitant]
  4. ACTIVASE [Suspect]
     Indication: PRODUCT USED FOR UNKNOWN INDICATION
  5. TENORMIN [Concomitant]
     Route: 042

REACTIONS (4)
  - CHEST INJURY [None]
  - HYPOTENSION [None]
  - VENTRICULAR EXTRASYSTOLES [None]
  - CARDIAC FAILURE CONGESTIVE [None]
